FAERS Safety Report 9656206 (Version 1)
Quarter: 2013Q4

REPORT INFORMATION
  Report Type: Spontaneous
  Country: US (occurrence: None)
  Receive Date: 20131029
  Receipt Date: 20131029
  Transmission Date: 20140711
  Serious: No
  Sender: FDA-Public Use
  Company Number: None

PATIENT
  Age: 53 Year
  Sex: Female

DRUGS (5)
  1. COMBIVENT RESPIMAT [Suspect]
     Indication: CHRONIC OBSTRUCTIVE PULMONARY DISEASE
     Dosage: 20 MCG/100 MCG, 2 PUFFS EVERY 4 HOURS DAILY BY MOUTH (INHALER)
     Route: 055
     Dates: start: 201307
  2. ASPIRIN [Concomitant]
  3. L-LYSINE [Concomitant]
  4. BIOTIN [Concomitant]
  5. CALCIUM/D3 [Concomitant]

REACTIONS (2)
  - Drug effect decreased [None]
  - Product quality issue [None]
